FAERS Safety Report 9159299 (Version 1)
Quarter: 2013Q1

REPORT INFORMATION
  Report Type: Spontaneous
  Country: US (occurrence: None)
  Receive Date: 20130312
  Receipt Date: 20130312
  Transmission Date: 20140127
  Serious: Yes (Other)
  Sender: FDA-Public Use
  Company Number: None

PATIENT
  Age: 30 Year
  Sex: Female
  Weight: 60 kg

DRUGS (1)
  1. DOXYCYLINE [Suspect]
     Indication: MALARIA
     Route: 002

REACTIONS (10)
  - Nausea [None]
  - Vomiting [None]
  - Pyrexia [None]
  - Headache [None]
  - Diarrhoea [None]
  - Rash pruritic [None]
  - Local swelling [None]
  - Pain in extremity [None]
  - Tinnitus [None]
  - Dizziness [None]
